FAERS Safety Report 7078154-0 (Version None)
Quarter: 2010Q4

REPORT INFORMATION
  Report Type: 
  Country: None (occurrence: None)
  Receive Date: 20101102
  Receipt Date: 20100527
  Transmission Date: 20110411
  Serious: Yes (Hospitalization, Other)
  Sender: FDA-Public Use
  Company Number: US-ASTRAZENECA-2010SE30405

PATIENT
  Age: 639 Month
  Sex: Male

DRUGS (17)
  1. SEROQUEL [Suspect]
     Dosage: 400 MG PO QHS AND 50 MG PO TWO TIMES A DAY
     Route: 048
     Dates: start: 20070718
  2. NALTREXONE HYDROCHLORIDE [Concomitant]
     Route: 048
     Dates: start: 20070603
  3. LITHIUM [Concomitant]
     Route: 048
     Dates: end: 20071121
  4. COGENTIN [Concomitant]
     Dosage: 1 MG PO Q AM AND HS
     Route: 048
     Dates: start: 20070603
  5. REGLAN [Concomitant]
     Route: 048
     Dates: start: 20070804
  6. PROMETHAZINE [Concomitant]
     Indication: NAUSEA
     Dosage: 25 MG PO Q 6H AS NEEDED
     Route: 048
     Dates: start: 20071121
  7. ZESTORETIC [Concomitant]
     Dosage: 20/12.5, ONE TABLET ONCE DAILY
     Dates: start: 20071121
  8. SORIATANE [Concomitant]
     Dosage: 10-20 MG ONCE A  DAILY
     Dates: start: 20071121
  9. RELAFEN [Concomitant]
     Route: 048
     Dates: start: 20071121
  10. DEPAKOTE [Concomitant]
     Dates: start: 20090101
  11. FLUPHENAZINE [Concomitant]
     Dates: start: 20070603
  12. LITHIUM CARBONATE [Concomitant]
     Dates: start: 20070603
  13. RISPERDAL [Concomitant]
     Dates: start: 20070603
  14. DOXEPIN HCL [Concomitant]
     Dates: start: 20070603
  15. ZYPREXA [Concomitant]
     Dates: start: 20070603
  16. MIRTAZAPINE [Concomitant]
     Dates: start: 20070618
  17. TOPROL-XL [Concomitant]

REACTIONS (19)
  - ANAEMIA [None]
  - DIABETES MELLITUS [None]
  - GALLBLADDER DISORDER [None]
  - HEAD INJURY [None]
  - HEPATITIS C [None]
  - HYPERTENSION [None]
  - HYPOTENSION [None]
  - MAJOR DEPRESSION [None]
  - MENTAL STATUS CHANGES [None]
  - PANCREATITIS [None]
  - PSYCHOTIC DISORDER [None]
  - RENAL CYST [None]
  - RENAL FAILURE ACUTE [None]
  - SCHIZOAFFECTIVE DISORDER [None]
  - SCHIZOPHRENIA [None]
  - SUBSTANCE ABUSE [None]
  - THROMBOCYTOPENIA [None]
  - TYPE 2 DIABETES MELLITUS [None]
  - URINARY TRACT INFECTION [None]
